FAERS Safety Report 9500266 (Version 3)
Quarter: 2013Q4

REPORT INFORMATION
  Report Type: Spontaneous
  Country: US (occurrence: None)
  Receive Date: 20130107
  Receipt Date: 20131226
  Transmission Date: 20140711
  Serious: Yes (Other)
  Sender: FDA-Public Use
  Company Number: PHEH2012US022856

PATIENT
  Age: 62 Year
  Sex: Female
  Weight: 141 kg

DRUGS (21)
  1. GILENYA [Suspect]
     Indication: MULTIPLE SCLEROSIS
     Route: 048
     Dates: start: 20111222
  2. AMITIZA (LUBIPROSTONE) [Concomitant]
  3. ANTIVERT /00007101/ (MECLOZINE HYDROCHLORIDE, NICOTINIC ACID) [Concomitant]
  4. BENTYL (DICYCLOVERINE HYDROCHLORIDE) [Concomitant]
  5. CARAFATE (SUCRALFATE) TABLET, 1G [Concomitant]
  6. CEPHALEXIN (CEPHALEXIN) [Concomitant]
  7. INSULIN (INSULIN) [Concomitant]
  8. LASIX (FUROSEMIDE) [Concomitant]
  9. MIRAPEX (PRAMIPEXOLE DIHYDROCHLORIDE) [Concomitant]
  10. MOBIC (MELOXICAM) [Concomitant]
  11. NORVASC (AMLODIPINE BESILATE) [Concomitant]
  12. NUVIGIL (ARMODAFINIL) [Concomitant]
  13. PREVACID (LANSOPRAZOLE) [Concomitant]
  14. PROZAC (FLUOXETINE HYDROCHLORIDE) [Concomitant]
  15. REGLAN /USA/ (METOCLOPRAMIDE HYDROCHLORIDE) [Concomitant]
  16. REQUIP (ROPINIROLE HYDROCHLORIDE) [Concomitant]
  17. SOMA (CARISOPRODOL) [Concomitant]
  18. SYNTHROID (LEVOTHYROXINE SODIUM) [Concomitant]
  19. XANAX (ALPRAZOLAM) [Concomitant]
  20. ZANTAC (RANITIDINE HYDROCHLORIDE) [Concomitant]
  21. ZETIA (EZETIMIBE) [Concomitant]

REACTIONS (2)
  - Pyrexia [None]
  - Cellulitis [None]
